FAERS Safety Report 11683122 (Version 5)
Quarter: 2015Q4

REPORT INFORMATION
  Report Type: Spontaneous
  Country: None (occurrence: US)
  Receive Date: 20151029
  Receipt Date: 20151125
  Transmission Date: 20160304
  Serious: No
  Sender: FDA-Public Use
  Company Number: US-RARE DISEASE THERAPEUTICS, INC.-1043547

PATIENT
  Age: 34 Year
  Sex: Female
  Weight: 140.6 kg

DRUGS (10)
  1. CYSTADANE [Suspect]
     Active Substance: BETAINE
     Route: 048
     Dates: start: 201404
  2. CYANOCOBALAMINE [Concomitant]
     Active Substance: CYANOCOBALAMIN
  3. METOPROLOL SUCCINATE. [Concomitant]
     Active Substance: METOPROLOL SUCCINATE
  4. CYSTADANE [Suspect]
     Active Substance: BETAINE
     Indication: HOMOCYSTINURIA
     Dates: start: 2012, end: 20150625
  5. FOLIC ACID. [Concomitant]
     Active Substance: FOLIC ACID
     Dates: start: 201205
  6. CYSTADANE [Suspect]
     Active Substance: BETAINE
     Route: 048
     Dates: start: 201402
  7. PYRIDOXINE [Concomitant]
     Active Substance: PYRIDOXINE
  8. VITAMIN B6 [Concomitant]
     Active Substance: PYRIDOXINE HYDROCHLORIDE
     Dates: start: 201205
  9. CYSTADANE [Suspect]
     Active Substance: BETAINE
     Route: 048
     Dates: start: 20140717
  10. WARFARIN [Concomitant]
     Active Substance: WARFARIN
     Dates: start: 201103

REACTIONS (6)
  - Treatment noncompliance [Unknown]
  - Vomiting [Recovering/Resolving]
  - Dysgeusia [Not Recovered/Not Resolved]
  - Overdose [Unknown]
  - Inappropriate schedule of drug administration [Unknown]
  - Nausea [Recovering/Resolving]

NARRATIVE: CASE EVENT DATE: 20150103
